FAERS Safety Report 13333557 (Version 1)
Quarter: 2017Q1

REPORT INFORMATION
  Report Type: Spontaneous
  Country: ES (occurrence: ES)
  Receive Date: 20170314
  Receipt Date: 20170314
  Transmission Date: 20170428
  Serious: Yes (Other)
  Sender: FDA-Public Use
  Company Number: ES-REGENERON PHARMACEUTICALS, INC.-2017-13037

PATIENT

DRUGS (4)
  1. EYLEA [Suspect]
     Active Substance: AFLIBERCEPT
     Dosage: 8 INJECTIONS IN LEFT EYE IN TOTAL DURING FIRST YEAR
     Route: 031
  2. EYLEA [Suspect]
     Active Substance: AFLIBERCEPT
     Indication: RETINAL VEIN OCCLUSION
     Dosage: 2 INJECTIONS IN LEFT EYE PRIOR TO COMPLAINT OF NO CLINICAL IMPROVEMENT
     Route: 031
  3. EYLEA [Suspect]
     Active Substance: AFLIBERCEPT
     Dosage: 3 INJECTIONS IN LEFT EYE IN TOTAL DURING THRID YEAR
     Route: 031
  4. EYLEA [Suspect]
     Active Substance: AFLIBERCEPT
     Dosage: 4 INJECTIONS IN LEFT EYE IN TOTAL DURING SECOND YEAR
     Route: 031

REACTIONS (7)
  - Splinter haemorrhages [Unknown]
  - Papilloedema [Unknown]
  - Retinal haemorrhage [Unknown]
  - Macular oedema [Unknown]
  - Retinal exudates [Unknown]
  - Product use issue [Unknown]
  - Drug ineffective [Unknown]
